FAERS Safety Report 5859161-X (Version None)
Quarter: 2008Q3

REPORT INFORMATION
  Report Type: 
  Country: None (occurrence: None)
  Receive Date: 20080825
  Receipt Date: 20080815
  Transmission Date: 20090109
  Serious: Yes (Life-Threatening, Hospitalization)
  Sender: FDA-Public Use
  Company Number: 1000000544

PATIENT
  Sex: Male
  Weight: 3.94 kg

DRUGS (2)
  1. CERVIDIL [Suspect]
     Dosage: 10 MG, ONCE, TRANSPLACENTAL
     Route: 064
     Dates: start: 20061021, end: 20061001
  2. ALDOMET [Concomitant]

REACTIONS (9)
  - APGAR SCORE LOW [None]
  - BLOOD BICARBONATE DECREASED [None]
  - BLOOD PH DECREASED [None]
  - CAESAREAN SECTION [None]
  - FOETAL HEART RATE DISORDER [None]
  - MATERNAL DRUGS AFFECTING FOETUS [None]
  - PCO2 INCREASED [None]
  - PO2 DECREASED [None]
  - UMBILICAL CORD ABNORMALITY [None]
